FAERS Safety Report 7871991 (Version 3)
Quarter: 2013Q1

REPORT INFORMATION
  Report Type: Spontaneous
  Country: US (occurrence: US)
  Receive Date: 20110325
  Receipt Date: 20130212
  Transmission Date: 20140127
  Serious: Yes (Hospitalization, Other)
  Sender: FDA-Public Use
  Company Number: US-BAYER-2011-026104

PATIENT
  Age: 19 Year
  Sex: Female
  Weight: 70.3 kg

DRUGS (3)
  1. YAZ [Suspect]
     Indication: PREMENSTRUAL SYNDROME
     Dosage: UNK
     Route: 048
     Dates: start: 20071107, end: 20080120
  2. LOVENOX [ENOXAPARIN SODIUM] [Concomitant]
     Dosage: UNK
     Dates: start: 20080120
  3. COUMADIN [Concomitant]
     Dosage: UNK
     Dates: start: 200801

REACTIONS (4)
  - Pulmonary embolism [None]
  - Abortion [None]
  - Infertility female [None]
  - Mental disorder [None]
